FAERS Safety Report 20840518 (Version 1)
Quarter: 2022Q2

REPORT INFORMATION
  Report Type: Spontaneous
  Country: SE (occurrence: SE)
  Receive Date: 20220517
  Receipt Date: 20220517
  Transmission Date: 20220720
  Serious: Yes (Other)
  Sender: FDA-Public Use
  Company Number: SE-002147023-NVSC2022SE097064

PATIENT
  Sex: Male

DRUGS (2)
  1. METHOTREXATE [Suspect]
     Active Substance: METHOTREXATE
     Indication: Product used for unknown indication
     Dosage: 25 MILLIGRAM (25 MG)
     Route: 065
     Dates: end: 20181201
  2. METHOTREXATE [Suspect]
     Active Substance: METHOTREXATE
     Dosage: 20 MILLIGRAM (20 MG)
     Route: 065
     Dates: end: 20210429

REACTIONS (6)
  - Blood creatine increased [Unknown]
  - Renal impairment [Unknown]
  - Muscle spasms [Unknown]
  - Blood pressure increased [Unknown]
  - Oedema [Unknown]
  - Gastrointestinal infection [Unknown]
